FAERS Safety Report 5150339-X (Version None)
Quarter: 2006Q4

REPORT INFORMATION
  Report Type: 
  Country: None (occurrence: None)
  Receive Date: 20061108
  Receipt Date: 20061024
  Transmission Date: 20070319
  Serious: Yes (Hospitalization)
  Sender: FDA-Public Use
  Company Number: 2006SP004415

PATIENT
  Age: 50 Year
  Sex: Male

DRUGS (2)
  1. PEG-INTRON [Suspect]
     Indication: HEPATITIS C
     Dosage: 100 MCG;QW;SC
     Route: 058
     Dates: start: 20060419, end: 20061011
  2. REBETOL [Suspect]
     Indication: HEPATITIS C
     Dosage: 800 MG; QD;PO
     Route: 048
     Dates: start: 20060419, end: 20061011

REACTIONS (4)
  - AUTOIMMUNE DISORDER [None]
  - INTESTINAL OBSTRUCTION [None]
  - PANCREATITIS ACUTE [None]
  - SJOGREN'S SYNDROME [None]
